FAERS Safety Report 9654342 (Version 3)
Quarter: 2013Q4

REPORT INFORMATION
  Report Type: Spontaneous
  Country: NL (occurrence: NL)
  Receive Date: 20131029
  Receipt Date: 20131205
  Transmission Date: 20140711
  Serious: Yes (Death, Other)
  Sender: FDA-Public Use
  Company Number: NL-TAKEDA-TPA2013A04315

PATIENT
  Sex: 0

DRUGS (7)
  1. ADENURIC [Suspect]
     Indication: GOUTY TOPHUS
     Dosage: 80 MG, QD
     Route: 065
     Dates: start: 20111209, end: 20121117
  2. COLCHICINE [Concomitant]
     Indication: GOUT
     Dosage: 1 MG, QD
  3. METOPROLOL [Concomitant]
     Dosage: 100 MG, QD
  4. ENALAPRIL [Concomitant]
     Dosage: 10 MG, QD
  5. ENALAPRIL [Concomitant]
     Dosage: 10 MG, QD
  6. FLIXOTIDE [Concomitant]
     Dosage: 250 ?G, QD
  7. ZOLADEX                            /00732101/ [Concomitant]
     Dosage: UNK

REACTIONS (1)
  - Death [Fatal]
